FAERS Safety Report 25948067 (Version 2)
Quarter: 2025Q4

REPORT INFORMATION
  Report Type: Spontaneous
  Country: US (occurrence: US)
  Receive Date: 20251022
  Receipt Date: 20251120
  Transmission Date: 20260117
  Serious: Yes (Other)
  Sender: INCYTE
  Company Number: US-INCYTE CORPORATION-2025IN011506

PATIENT
  Age: 69 Year

DRUGS (2)
  1. JAKAFI [Suspect]
     Active Substance: RUXOLITINIB
     Indication: Product used for unknown indication
     Dosage: 20 MILLIGRAM, BID
  2. JAKAFI [Suspect]
     Active Substance: RUXOLITINIB
     Dosage: 10 MG ONCE DAILY FOR 7 DAYS THEN 5 MG ONCE DAILY FOR 14 DAYS

REACTIONS (5)
  - Squamous cell carcinoma [Unknown]
  - Pain [Unknown]
  - Pollakiuria [Unknown]
  - Fatigue [Unknown]
  - Nausea [Unknown]
